FAERS Safety Report 4447372-X (Version None)
Quarter: 2004Q3

REPORT INFORMATION
  Report Type: 
  Country: None (occurrence: None)
  Receive Date: 20040802
  Receipt Date: 20040617
  Transmission Date: 20050211
  Serious: No
  Sender: FDA-Public Use
  Company Number: 2004-117495-NL

PATIENT
  Age: 23 Year
  Sex: Female

DRUGS (5)
  1. NUVARING [Suspect]
     Indication: CONTRACEPTION
     Dosage: DF DAILY VAGINAL
     Route: 067
     Dates: start: 20030101
  2. IMITREX ^CERENEX^ [Concomitant]
  3. ADVIL [Concomitant]
  4. TYLENOL [Concomitant]
  5. MULTI-VITAMINS [Concomitant]

REACTIONS (1)
  - VAGINAL MYCOSIS [None]
